FAERS Safety Report 15375844 (Version 3)
Quarter: 2019Q2

REPORT INFORMATION
  Report Type: Spontaneous
  Country: DE (occurrence: DE)
  Receive Date: 20180912
  Receipt Date: 20190513
  Transmission Date: 20190711
  Serious: Yes (Other)
  Sender: FDA-Public Use
  Company Number: DE-MYLANLABS-2018M1066571

PATIENT
  Age: 23 Year
  Sex: Female

DRUGS (9)
  1. LIDOCAINE. [Suspect]
     Active Substance: LIDOCAINE
     Indication: RADICULOPATHY
     Dosage: UNK
     Route: 061
  2. TILIDINE [Suspect]
     Active Substance: TILIDINE
     Indication: NEURALGIA
  3. NALOXONE [Suspect]
     Active Substance: NALOXONE
     Indication: RADICULOPATHY
     Dosage: UNK
  4. TAPENTADOL [Suspect]
     Active Substance: TAPENTADOL
     Indication: NEURALGIA
  5. NALOXONE [Suspect]
     Active Substance: NALOXONE
     Indication: NEURALGIA
  6. TILIDINE [Suspect]
     Active Substance: TILIDINE
     Indication: RADICULOPATHY
     Dosage: UNK
  7. TAPENTADOL [Suspect]
     Active Substance: TAPENTADOL
     Indication: RADICULOPATHY
     Dosage: 300 MG, UNK
  8. DULOXETINE. [Suspect]
     Active Substance: DULOXETINE
     Indication: NEURALGIA
  9. DULOXETINE. [Suspect]
     Active Substance: DULOXETINE
     Indication: RADICULOPATHY
     Dosage: UNK

REACTIONS (7)
  - Therapeutic response decreased [Unknown]
  - Drug ineffective for unapproved indication [Unknown]
  - Intentional product misuse [Unknown]
  - Cognitive disorder [Unknown]
  - Product use in unapproved indication [Unknown]
  - Medication error [Unknown]
  - Therapeutic product effect incomplete [Unknown]
